FAERS Safety Report 21515019 (Version 5)
Quarter: 2023Q2

REPORT INFORMATION
  Report Type: Spontaneous
  Country: US (occurrence: US)
  Receive Date: 20221027
  Receipt Date: 20230413
  Transmission Date: 20230721
  Serious: No
  Sender: FDA-Public Use
  Company Number: US-PFIZER INC-PV202200090108

PATIENT
  Age: 28 Year
  Sex: Male

DRUGS (1)
  1. XELJANZ [Suspect]
     Active Substance: TOFACITINIB CITRATE
     Dosage: UNK
     Dates: start: 202210

REACTIONS (13)
  - Therapeutic product effect delayed [Unknown]
  - Dizziness [Unknown]
  - Abdominal discomfort [Unknown]
  - Headache [Recovered/Resolved]
  - Back pain [Unknown]
  - Product dose omission issue [Unknown]
  - Hypersomnia [Unknown]
  - Musculoskeletal stiffness [Unknown]
  - Memory impairment [Unknown]
  - Upper respiratory tract infection [Recovered/Resolved]
  - Sinusitis [Unknown]
  - Rhinorrhoea [Unknown]
  - Therapeutic product effect incomplete [Unknown]

NARRATIVE: CASE EVENT DATE: 20220101
